FAERS Safety Report 9659863 (Version 1)
Quarter: 2013Q4

REPORT INFORMATION
  Report Type: Spontaneous
  Country: FR (occurrence: FR)
  Receive Date: 20131031
  Receipt Date: 20131031
  Transmission Date: 20140711
  Serious: Yes (Hospitalization)
  Sender: FDA-Public Use
  Company Number: FR-JNJFOC-20131018003

PATIENT
  Age: 55 Year
  Sex: Male

DRUGS (6)
  1. XARELTO [Suspect]
     Indication: PRODUCT USED FOR UNKNOWN INDICATION
     Route: 048
     Dates: start: 20130125, end: 20130211
  2. FRAGMIN [Suspect]
     Indication: PRODUCT USED FOR UNKNOWN INDICATION
     Route: 065
     Dates: start: 20130212
  3. CONTRAMAL [Concomitant]
     Route: 065
  4. OXYCONTIN [Concomitant]
     Route: 065
     Dates: start: 20130209
  5. IBUPROFENE [Concomitant]
     Route: 065
     Dates: start: 20130216
  6. DAFALGAN [Concomitant]
     Dosage: 8 TABLETS PER DAY
     Route: 065
     Dates: start: 20130131

REACTIONS (1)
  - Rash [Recovered/Resolved]
